FAERS Safety Report 24977931 (Version 1)
Quarter: 2025Q1

REPORT INFORMATION
  Report Type: Spontaneous
  Country: JP (occurrence: JP)
  Receive Date: 20250217
  Receipt Date: 20250217
  Transmission Date: 20250409
  Serious: Yes (Other)
  Sender: PFIZER
  Company Number: JP-PFIZER INC-PV202400034403

PATIENT
  Age: 96 Year
  Sex: Female
  Weight: 45 kg

DRUGS (10)
  1. TOVIAZ [Suspect]
     Active Substance: FESOTERODINE FUMARATE
     Indication: Nocturia
     Dosage: 4 MG, 2X/DAY
     Route: 048
     Dates: start: 20230706, end: 20230708
  2. REBAMIPIDE [Suspect]
     Active Substance: REBAMIPIDE
  3. MEPENZOLATE BROMIDE [Suspect]
     Active Substance: MEPENZOLATE BROMIDE
  4. HAPSTAR ID [Concomitant]
  5. INDOMETHACIN [Concomitant]
     Active Substance: INDOMETHACIN
  6. VITAMEDIN [BENFOTIAMINE;CYANOCOBALAMIN;PYRIDOXINE HYDROCHLORIDE] [Concomitant]
  7. BIOFERMIN [BIFIDOBACTERIUM NOS] [Concomitant]
  8. BIO-THREE [Concomitant]
     Active Substance: HERBALS
  9. HERBALS [Concomitant]
     Active Substance: HERBALS
  10. TOCOPHERYL NICOTINATE [Concomitant]
     Active Substance: TOCOPHERYL NICOTINATE, D-.ALPHA.

REACTIONS (3)
  - Fall [Recovered/Resolved]
  - Head injury [Unknown]
  - Dizziness [Recovered/Resolved]

NARRATIVE: CASE EVENT DATE: 20230708
